FAERS Safety Report 5419195-6 (Version None)
Quarter: 2007Q3

REPORT INFORMATION
  Report Type: 
  Country: None (occurrence: None)
  Receive Date: 20070815
  Receipt Date: 20070815
  Transmission Date: 20080115
  Serious: Yes (Other)
  Sender: FDA-Public Use
  Company Number: None

PATIENT
  Age: 65 Year
  Sex: Male
  Weight: 65.5 kg

DRUGS (2)
  1. CAPECITABINE [Suspect]
     Indication: COLORECTAL CANCER
     Dosage: 3500 DAILY X 14 DAYS
     Route: 048
     Dates: start: 20070725, end: 20070802
  2. IRINOTECAN HCL [Suspect]
     Dosage: 443 DAY 1 OF EACH CYCL
     Route: 042
     Dates: start: 20070725, end: 20070725

REACTIONS (1)
  - NEUTROPHIL COUNT DECREASED [None]
